APPROVED DRUG PRODUCT: PACLITAXEL
Active Ingredient: PACLITAXEL
Strength: 6MG/ML
Dosage Form/Route: INJECTABLE;INJECTION
Application: A091540 | Product #001
Applicant: DASH PHARMACEUTICALS LLC
Approved: Sep 29, 2011 | RLD: No | RS: No | Type: DISCN